FAERS Safety Report 19750911 (Version 2)
Quarter: 2021Q3

REPORT INFORMATION
  Report Type: Spontaneous
  Country: CA (occurrence: CA)
  Receive Date: 20210826
  Receipt Date: 20210830
  Transmission Date: 20211014
  Serious: Yes (Other)
  Sender: FDA-Public Use
  Company Number: CA-PFIZER INC-202101082959

PATIENT
  Age: 37 Year
  Sex: Female

DRUGS (4)
  1. LEUCOVORIN [CALCIUM FOLINATE] [Concomitant]
     Active Substance: LEUCOVORIN
     Dosage: UNK
  2. HERBALIFE [Concomitant]
     Dosage: UNK
  3. CYMBALTA [Concomitant]
     Active Substance: DULOXETINE HYDROCHLORIDE
     Dosage: UNK
  4. METHOTREXATE SODIUM. [Suspect]
     Active Substance: METHOTREXATE SODIUM
     Indication: PSORIATIC ARTHROPATHY
     Dosage: 20 MG, WEEKLY
     Route: 058

REACTIONS (7)
  - Weight increased [Unknown]
  - Product use issue [Unknown]
  - Off label use [Unknown]
  - Psoriatic arthropathy [Not Recovered/Not Resolved]
  - Vaginal infection [Unknown]
  - Fibromyalgia [Unknown]
  - Tendon disorder [Unknown]

NARRATIVE: CASE EVENT DATE: 2021
